FAERS Safety Report 4980963-6 (Version None)
Quarter: 2006Q2

REPORT INFORMATION
  Report Type: 
  Country: None (occurrence: None)
  Receive Date: 20060424
  Receipt Date: 20060413
  Transmission Date: 20061013
  Serious: Yes (Other)
  Sender: FDA-Public Use
  Company Number: US-JNJFOC-20060403356

PATIENT
  Sex: Male
  Weight: 77.11 kg

DRUGS (15)
  1. REMICADE [Suspect]
     Indication: RHEUMATOID ARTHRITIS
     Route: 042
  2. ASPIRIN [Concomitant]
     Dosage: 325 MG .5 DAILY
  3. FOLIC ACID [Concomitant]
  4. FOSAMAX [Concomitant]
  5. IBUPROFEN [Concomitant]
  6. LISINOPRIL [Concomitant]
     Dosage: 20 MG .5 DAILY
  7. MAGNESIUM [Concomitant]
  8. METHOTREXATE SODIUM [Concomitant]
  9. NIACIN [Concomitant]
  10. SELENIUM SULFIDE [Concomitant]
  11. VITAMIN B6 [Concomitant]
  12. VITAMIN B-12 [Concomitant]
  13. ASCORBIC ACID [Concomitant]
  14. VITAMIN E [Concomitant]
  15. ZINC [Concomitant]

REACTIONS (1)
  - BASAL CELL CARCINOMA [None]
